FAERS Safety Report 5608512-X (Version None)
Quarter: 2008Q1

REPORT INFORMATION
  Report Type: 
  Country: None (occurrence: None)
  Receive Date: 20080130
  Receipt Date: 20080116
  Transmission Date: 20080703
  Serious: Yes (Disabling)
  Sender: FDA-Public Use
  Company Number: HU-AMGEN-UK253749

PATIENT
  Sex: Female

DRUGS (15)
  1. PANITUMUMAB [Suspect]
     Indication: COLORECTAL CANCER
     Route: 042
     Dates: start: 20070301, end: 20070301
  2. OXALIPLATIN [Concomitant]
  3. FLUOROURACIL [Concomitant]
  4. LEUCOVORIN CALCIUM [Concomitant]
  5. TRAMADOL HCL [Concomitant]
     Route: 048
     Dates: start: 20070101, end: 20070101
  6. MAGNESIUM [Concomitant]
     Route: 048
     Dates: start: 20070312, end: 20070506
  7. KALIUM [Concomitant]
     Route: 048
     Dates: start: 20070512, end: 20070516
  8. METOCLOPRAMIDE [Concomitant]
  9. ONDANSETRON [Concomitant]
     Route: 042
     Dates: start: 20070301, end: 20070506
  10. PERINDOPRIL [Concomitant]
     Route: 048
     Dates: start: 20070101
  11. FAMOTIDINE [Concomitant]
     Route: 042
     Dates: end: 20070422
  12. NAPROXEN [Concomitant]
     Dates: start: 20070303
  13. CIPRO [Concomitant]
     Dates: start: 20070512, end: 20070526
  14. METAMIZOLE [Concomitant]
     Dates: start: 20070522, end: 20070526
  15. ACETAMINOPHEN [Concomitant]
     Dates: start: 20070312, end: 20070326

REACTIONS (1)
  - PULMONARY EMBOLISM [None]
